FAERS Safety Report 7611434-6 (Version None)
Quarter: 2011Q3

REPORT INFORMATION
  Report Type: 
  Country: None (occurrence: None)
  Receive Date: 20110715
  Receipt Date: 20110707
  Transmission Date: 20111222
  Serious: Yes (Other)
  Sender: FDA-Public Use
  Company Number: BR-ROCHE-788675

PATIENT
  Sex: Male
  Weight: 120 kg

DRUGS (4)
  1. CLONAZEPAM [Suspect]
     Indication: SEDATION
     Dosage: FREQUENCY: 1 TABLET BEFORE SLEEP
     Route: 048
     Dates: start: 20110704
  2. LOSARTAN [Concomitant]
     Indication: HYPERTENSION
  3. CITALOPRAM HYDROBROMIDE [Concomitant]
     Indication: ANTIDEPRESSANT THERAPY
  4. HYDROCHLOROTHIAZIDE [Concomitant]

REACTIONS (3)
  - AGITATION [None]
  - HALLUCINATION [None]
  - TACHYPHRENIA [None]
